FAERS Safety Report 20940497 (Version 1)
Quarter: 2022Q2

REPORT INFORMATION
  Report Type: Spontaneous
  Country: US (occurrence: US)
  Receive Date: 20220609
  Receipt Date: 20220609
  Transmission Date: 20220720
  Serious: Yes (Other)
  Sender: FDA-Public Use
  Company Number: US-PURDUE PHARMA-USA-2022-0292952

PATIENT
  Age: 56 Year
  Sex: Female
  Weight: 54.422 kg

DRUGS (3)
  1. OXYCODONE HYDROCHLORIDE [Suspect]
     Active Substance: OXYCODONE HYDROCHLORIDE
     Indication: Analgesic therapy
     Dosage: 10 MG, TID
     Route: 048
     Dates: start: 20220324
  2. OXYCODONE HYDROCHLORIDE [Suspect]
     Active Substance: OXYCODONE HYDROCHLORIDE
     Indication: Pain
  3. OXYCODONE HYDROCHLORIDE [Suspect]
     Active Substance: OXYCODONE HYDROCHLORIDE
     Indication: Analgesic therapy
     Dosage: 10 MG, UNK
     Route: 048

REACTIONS (10)
  - Hallucination [Unknown]
  - Stress [Unknown]
  - Anxiety [Unknown]
  - Nausea [Unknown]
  - Drug ineffective [Unknown]
  - Illness [Unknown]
  - Product contamination [Unknown]
  - Agitation [Unknown]
  - Counterfeit product administered [Unknown]
  - Unevaluable event [Unknown]

NARRATIVE: CASE EVENT DATE: 20220325
